FAERS Safety Report 21365926 (Version 1)
Quarter: 2022Q3

REPORT INFORMATION
  Report Type: Report from Study
  Country: US (occurrence: US)
  Receive Date: 20220922
  Receipt Date: 20220922
  Transmission Date: 20221026
  Serious: No
  Sender: FDA-Public Use
  Company Number: US-ABBVIE-4127423

PATIENT
  Sex: Male

DRUGS (2)
  1. RINVOQ [Suspect]
     Active Substance: UPADACITINIB
     Indication: Rheumatoid arthritis
     Route: 048
  2. Moderna Covid-19 [Concomitant]
     Indication: COVID-19 immunisation
     Route: 030

REACTIONS (2)
  - Rhinorrhoea [Unknown]
  - Pain [Not Recovered/Not Resolved]
